FAERS Safety Report 5167244-5 (Version None)
Quarter: 2006Q4

REPORT INFORMATION
  Report Type: 
  Country: None (occurrence: None)
  Receive Date: 20061207
  Receipt Date: 20061206
  Transmission Date: 20070319
  Serious: Yes (Hospitalization)
  Sender: FDA-Public Use
  Company Number: NO-ROXANE LABORATORIES, INC-2006-DE-06492GD

PATIENT
  Age: 21 Year
  Sex: Female

DRUGS (2)
  1. ACETAMINOPHEN AND CODEINE PHOSPHATE [Suspect]
     Dosage: SOME TABLETS
     Route: 048
  2. SOMADRIL [Suspect]
     Dosage: 16 - 20

REACTIONS (4)
  - BODY TEMPERATURE DECREASED [None]
  - DRUG TOXICITY [None]
  - PNEUMONIA [None]
  - SEROTONIN SYNDROME [None]
